FAERS Safety Report 7999595-0 (Version None)
Quarter: 2011Q4

REPORT INFORMATION
  Report Type: 
  Country: None (occurrence: None)
  Receive Date: 20111221
  Receipt Date: 20111219
  Transmission Date: 20120403
  Serious: Yes (Disabling)
  Sender: FDA-Public Use
  Company Number: GB-MERCK-1111GBR00014

PATIENT
  Age: 73 Year
  Sex: Male

DRUGS (4)
  1. CLOPIDOGREL [Concomitant]
     Route: 048
     Dates: start: 20110601
  2. LOSARTAN POTASSIUM [Concomitant]
     Route: 048
     Dates: start: 20110601
  3. BENDROFLUMETHIAZIDE [Concomitant]
     Route: 048
     Dates: start: 20110513
  4. ZOCOR [Suspect]
     Indication: CEREBROVASCULAR ACCIDENT PROPHYLAXIS
     Route: 048
     Dates: start: 20110510, end: 20110815

REACTIONS (2)
  - BALANCE DISORDER [None]
  - GAIT DISTURBANCE [None]
